FAERS Safety Report 6727813-5 (Version None)
Quarter: 2010Q2

REPORT INFORMATION
  Report Type: 
  Country: None (occurrence: None)
  Receive Date: 20100517
  Receipt Date: 20100507
  Transmission Date: 20101027
  Serious: Yes (Other)
  Sender: FDA-Public Use
  Company Number: CA-ABBOTT-10P-028-0644846-00

PATIENT
  Age: 70 Year
  Sex: Female

DRUGS (2)
  1. BIAXIN XL [Suspect]
     Indication: DRUG USE FOR UNKNOWN INDICATION
  2. LIPITOR [Suspect]
     Indication: DRUG USE FOR UNKNOWN INDICATION

REACTIONS (1)
  - HEART RATE DECREASED [None]
